FAERS Safety Report 5417728-7 (Version None)
Quarter: 2007Q3

REPORT INFORMATION
  Report Type: 
  Country: None (occurrence: None)
  Receive Date: 20070815
  Receipt Date: 20070815
  Transmission Date: 20080115
  Serious: Yes (Hospitalization)
  Sender: FDA-Public Use
  Company Number: None

PATIENT
  Sex: Female
  Weight: 69.8539 kg

DRUGS (3)
  1. CARDIZEM [Suspect]
     Indication: HYPERTENSION
     Dosage: 60MG PO TID  (THERAPY DATES: PRIOR TO ADMISSION)
     Route: 048
  2. ALTACE [Concomitant]
  3. COUMADIN [Concomitant]

REACTIONS (5)
  - BRADYCARDIA [None]
  - DIZZINESS [None]
  - HYPERHIDROSIS [None]
  - HYPOTENSION [None]
  - PRESYNCOPE [None]
